FAERS Safety Report 24850122 (Version 1)
Quarter: 2025Q1

REPORT INFORMATION
  Report Type: Spontaneous
  Country: JP (occurrence: JP)
  Receive Date: 20250116
  Receipt Date: 20250116
  Transmission Date: 20250408
  Serious: Yes (Other)
  Sender: PFIZER
  Company Number: JP-PFIZER INC-PV202500006249

PATIENT
  Age: 65 Year
  Sex: Female

DRUGS (3)
  1. BINIMETINIB [Suspect]
     Active Substance: BINIMETINIB
     Indication: Rectal cancer stage IV
  2. ENCORAFENIB [Suspect]
     Active Substance: ENCORAFENIB
     Indication: Rectal cancer stage IV
  3. CETUXIMAB [Suspect]
     Active Substance: CETUXIMAB
     Indication: Rectal cancer stage IV

REACTIONS (1)
  - Serous retinal detachment [Unknown]
